FAERS Safety Report 18694667 (Version 1)
Quarter: 2021Q1

REPORT INFORMATION
  Report Type: Spontaneous
  Country: CA (occurrence: CA)
  Receive Date: 20210104
  Receipt Date: 20210104
  Transmission Date: 20210419
  Serious: Yes (Hospitalization)
  Sender: FDA-Public Use
  Company Number: CA-ADIENNEP-2020AD000667

PATIENT
  Age: 55 Year
  Sex: Male

DRUGS (22)
  1. PROCHLORPERAZINE. [Concomitant]
     Active Substance: PROCHLORPERAZINE
  2. METOCLOPRAMIDE. [Concomitant]
     Active Substance: METOCLOPRAMIDE
  3. ACETAMINOPHEN. [Concomitant]
     Active Substance: ACETAMINOPHEN
     Dosage: ()
  4. CITALOPRAM [Concomitant]
     Active Substance: CITALOPRAM HYDROBROMIDE
     Dosage: ()
  5. PHENYTOIN. [Concomitant]
     Active Substance: PHENYTOIN
  6. VENTOLIN [Concomitant]
     Active Substance: ALBUTEROL SULFATE
  7. GRASTOFIL SINGLEUSE PRE?FILLED SYRINGE [Concomitant]
     Dosage: ()
  8. LORAZEPAM. [Concomitant]
     Active Substance: LORAZEPAM
  9. MOMETASONE FUROATE. [Concomitant]
     Active Substance: MOMETASONE FUROATE
  10. VENLAFAXINE HYDROCHLORIDE. [Concomitant]
     Active Substance: VENLAFAXINE HYDROCHLORIDE
  11. ZYPREXA [Concomitant]
     Active Substance: OLANZAPINE
     Dosage: ()
  12. LANSOPRAZOLE. [Concomitant]
     Active Substance: LANSOPRAZOLE
     Dosage: ()
  13. OLANZAPINE. [Concomitant]
     Active Substance: OLANZAPINE
  14. THIOTEPA. [Suspect]
     Active Substance: THIOTEPA
     Indication: B-CELL LYMPHOMA
     Dosage: ()
  15. DEXAMETHASONE. [Concomitant]
     Active Substance: DEXAMETHASONE
  16. DEXILANT [Concomitant]
     Active Substance: DEXLANSOPRAZOLE
     Dosage: ()
  17. FLOVENT [Concomitant]
     Active Substance: FLUTICASONE PROPIONATE
  18. JUBLIA [Concomitant]
     Active Substance: EFINACONAZOLE
     Dosage: ()
     Route: 061
  19. LORATADINE. [Concomitant]
     Active Substance: LORATADINE
  20. BUSULFAN. [Suspect]
     Active Substance: BUSULFAN
     Indication: B-CELL LYMPHOMA
     Dosage: ()
  21. IMOVANE [Concomitant]
     Active Substance: ZOPICLONE
     Dosage: ()
  22. LEVOFLOXACIN. [Concomitant]
     Active Substance: LEVOFLOXACIN

REACTIONS (1)
  - Febrile neutropenia [Recovered/Resolved]
